FAERS Safety Report 16043636 (Version 5)
Quarter: 2019Q2

REPORT INFORMATION
  Report Type: Report from Study
  Country: US (occurrence: US)
  Receive Date: 20190306
  Receipt Date: 20190402
  Transmission Date: 20190711
  Serious: Yes (Hospitalization, Other)
  Sender: FDA-Public Use
  Company Number: US-ALEXION PHARMACEUTICALS INC.-A201903415

PATIENT
  Sex: Male

DRUGS (1)
  1. SOLIRIS [Suspect]
     Active Substance: ECULIZUMAB
     Indication: PRODUCT USED FOR UNKNOWN INDICATION
     Route: 065

REACTIONS (12)
  - Fall [Unknown]
  - Gait disturbance [Recovering/Resolving]
  - Dyspnoea [Unknown]
  - Pneumonia [Unknown]
  - Abdominal pain [Unknown]
  - Mental status changes [Unknown]
  - Renal failure [Recovering/Resolving]
  - Peripheral swelling [Recovering/Resolving]
  - Disorientation [Unknown]
  - Constipation [Unknown]
  - Urine output decreased [Recovering/Resolving]
  - Abdominal distension [Unknown]

NARRATIVE: CASE EVENT DATE: 201901
